FAERS Safety Report 9258416 (Version 1)
Quarter: 2013Q2

REPORT INFORMATION
  Report Type: Spontaneous
  Country: SE (occurrence: SE)
  Receive Date: 20130426
  Receipt Date: 20130426
  Transmission Date: 20140414
  Serious: Yes (Hospitalization)
  Sender: FDA-Public Use
  Company Number: SE-ASTRAZENECA-2013SE25914

PATIENT
  Age: 89 Year
  Sex: Female

DRUGS (5)
  1. NAROP [Suspect]
     Indication: LOCAL ANAESTHESIA
     Dosage: 100 ML/ 2MG/ML
  2. EPINEPHRINE [Suspect]
     Indication: LOCAL ANAESTHESIA
     Dosage: 5 ML 0.1 MG/ML
  3. KETOROLAC [Suspect]
     Indication: LOCAL ANAESTHESIA
     Dosage: 1ML 30 MG/ML
  4. ATACAND PLUS [Concomitant]
     Indication: HYPERTENSION
     Dosage: 16X12.5 MG DAILY
     Route: 048
  5. ANAESTHETIC [Concomitant]
     Indication: SPINAL ANAESTHESIA

REACTIONS (2)
  - Renal failure acute [Recovered/Resolved]
  - Weight increased [None]
